FAERS Safety Report 4773842-0 (Version None)
Quarter: 2005Q3

REPORT INFORMATION
  Report Type: 
  Country: None (occurrence: None)
  Receive Date: 20050919
  Receipt Date: 20050908
  Transmission Date: 20060218
  Serious: Yes (Hospitalization)
  Sender: FDA-Public Use
  Company Number: FRWYE963508SEP05

PATIENT
  Age: 34 Year
  Sex: Female

DRUGS (4)
  1. EFFEXOR [Suspect]
     Route: 048
     Dates: end: 20050729
  2. DIPPIPERON (PIPAMPERONE, , 0) [Suspect]
     Dosage: ORAL
     Route: 048
     Dates: end: 20050729
  3. MEBEVERINE HYDROCHLORIDE (MEBEVERINE HYDROCHLORIDE, , 0) [Suspect]
     Dosage: ORAL
     Route: 048
     Dates: end: 20050729
  4. SPASFON (PHLOROGLUCIOL/TRIMETHYLPHLOROGLUCINOL,,0) [Suspect]
     Dosage: ORAL
     Route: 048
     Dates: end: 20050729

REACTIONS (10)
  - ALANINE AMINOTRANSFERASE INCREASED [None]
  - ASPARTATE AMINOTRANSFERASE INCREASED [None]
  - BILIARY DILATATION [None]
  - BILIRUBIN CONJUGATED INCREASED [None]
  - BLOOD BILIRUBIN INCREASED [None]
  - CHOLELITHIASIS [None]
  - GALLBLADDER DISORDER [None]
  - PANCREATITIS HAEMORRHAGIC [None]
  - PANCREATITIS NECROTISING [None]
  - TRANSAMINASES INCREASED [None]
